FAERS Safety Report 6893012-X (Version None)
Quarter: 2010Q3

REPORT INFORMATION
  Report Type: 
  Country: None (occurrence: None)
  Receive Date: 20100731
  Receipt Date: 20090109
  Transmission Date: 20110219
  Serious: No
  Sender: FDA-Public Use
  Company Number: US-PFIZER INC-2008153001

PATIENT
  Sex: Female

DRUGS (3)
  1. NORVASC [Suspect]
     Indication: HYPERTENSION
     Dosage: 5 MG, 1X/DAY
     Route: 048
     Dates: start: 20080922
  2. HYDROCHLOROTHIAZIDE [Concomitant]
     Dosage: UNK
  3. THYROID TAB [Concomitant]
     Dosage: UNK

REACTIONS (1)
  - FEMALE SEXUAL AROUSAL DISORDER [None]
